FAERS Safety Report 4659204-5 (Version None)
Quarter: 2005Q2

REPORT INFORMATION
  Report Type: 
  Country: None (occurrence: None)
  Receive Date: 20050511
  Receipt Date: 20050428
  Transmission Date: 20051028
  Serious: Yes (Hospitalization)
  Sender: FDA-Public Use
  Company Number: US-AMGEN-US130720

PATIENT
  Age: 56 Year
  Sex: Male

DRUGS (5)
  1. PROCRIT [Suspect]
     Indication: PRE-EXISTING DISEASE
     Dates: start: 20050101
  2. PROGRAF [Concomitant]
  3. CELLCEPT [Concomitant]
  4. INTERFERON [Concomitant]
  5. RIBAVIRIN [Concomitant]

REACTIONS (2)
  - HAEMOGLOBIN DECREASED [None]
  - SYNCOPE [None]
